FAERS Safety Report 12755628 (Version 1)
Quarter: 2016Q3

REPORT INFORMATION
  Report Type: Spontaneous
  Country: FR (occurrence: FR)
  Receive Date: 20160916
  Receipt Date: 20160916
  Transmission Date: 20161109
  Serious: Yes (Hospitalization)
  Sender: FDA-Public Use
  Company Number: FR-TEVA-688179ROM

PATIENT
  Age: 1 Year
  Sex: Male
  Weight: 9.6 kg

DRUGS (9)
  1. VINCRISTINE HOSPIRA 2 MG/2 ML [Suspect]
     Active Substance: VINCRISTINE
     Indication: EWING^S SARCOMA
     Dosage: .5 MILLIGRAM DAILY;
     Route: 042
     Dates: start: 20160420, end: 20160421
  2. BICARBONATE DE SODIUM [Concomitant]
     Active Substance: SODIUM BICARBONATE
  3. GRANOCYTE [Concomitant]
     Active Substance: LENOGRASTIM
  4. ETOPOPHOS [Suspect]
     Active Substance: ETOPOSIDE PHOSPHATE
     Indication: EWING^S SARCOMA
     Dosage: 50 MILLIGRAM DAILY;
     Route: 042
     Dates: start: 20160420, end: 20160422
  5. MYCOSTATINE [Concomitant]
     Active Substance: NYSTATIN
  6. MESNA EG 100MG/ML [Concomitant]
  7. DOXORUBICINE TEVA [Suspect]
     Active Substance: DOXORUBICIN
     Indication: EWING^S SARCOMA
     Dosage: 6.8 MILLIGRAM DAILY;
     Route: 042
     Dates: start: 20160420, end: 20160421
  8. IFOSFAMIDE EG 40 MG/ML [Suspect]
     Active Substance: IFOSFAMIDE
     Indication: EWING^S SARCOMA
     Route: 042
     Dates: start: 20160420, end: 20160421
  9. ZOPHREN 8MG/4ML [Concomitant]
     Active Substance: ONDANSETRON

REACTIONS (1)
  - Encephalopathy [Recovered/Resolved]

NARRATIVE: CASE EVENT DATE: 20160422
